FAERS Safety Report 24736209 (Version 1)
Quarter: 2024Q4

REPORT INFORMATION
  Report Type: Spontaneous
  Country: US (occurrence: None)
  Receive Date: 20241216
  Receipt Date: 20241216
  Transmission Date: 20250115
  Serious: No
  Sender: NODEN PHARMA
  Company Number: US-ARIS GLOBAL-NOD202408-000118

PATIENT

DRUGS (1)
  1. RASILEZ [Suspect]
     Active Substance: ALISKIREN
     Indication: Hypertension

REACTIONS (1)
  - Product dose omission issue [Unknown]
